FAERS Safety Report 7262202-9 (Version None)
Quarter: 2011Q1

REPORT INFORMATION
  Report Type: 
  Country: None (occurrence: None)
  Receive Date: 20110130
  Receipt Date: 20101113
  Transmission Date: 20110831
  Serious: No
  Sender: FDA-Public Use
  Company Number: US-ABBOTT-10P-163-0685440-00

PATIENT
  Age: 35 Year
  Sex: Female

DRUGS (3)
  1. FLAGYL [Concomitant]
     Indication: PRODUCT USED FOR UNKNOWN INDICATION
     Dosage: AS NEEDED
  2. PENTASA [Concomitant]
     Indication: PRODUCT USED FOR UNKNOWN INDICATION
  3. HUMIRA [Suspect]
     Indication: CROHN'S DISEASE
     Dates: start: 20091226

REACTIONS (4)
  - CROHN'S DISEASE [None]
  - DRUG DOSE OMISSION [None]
  - ABDOMINAL PAIN [None]
  - GASTROINTESTINAL SOUNDS ABNORMAL [None]
